FAERS Safety Report 5489552-0 (Version None)
Quarter: 2007Q4

REPORT INFORMATION
  Report Type: 
  Country: None (occurrence: None)
  Receive Date: 20071016
  Receipt Date: 20071016
  Transmission Date: 20080405
  Serious: No
  Sender: FDA-Public Use
  Company Number: None

PATIENT
  Age: 54 Year
  Sex: Female
  Weight: 86.9 kg

DRUGS (18)
  1. NOREPINEPHRINE BITARTRATE [Suspect]
     Indication: HYPOTENSION
     Dosage: TITRATE TO BP IV DRIP
     Route: 041
     Dates: start: 20070729, end: 20070731
  2. NOREPINEPHRINE BITARTRATE [Suspect]
     Indication: SEPTIC SHOCK
     Dosage: TITRATE TO BP IV DRIP
     Route: 041
     Dates: start: 20070729, end: 20070731
  3. VASOPRESSIN [Suspect]
     Indication: HYPOTENSION
     Dosage: TITRATE TO BP IV DRIP
     Route: 041
     Dates: start: 20070730, end: 20070731
  4. VASOPRESSIN [Suspect]
     Indication: SEPTIC SHOCK
     Dosage: TITRATE TO BP IV DRIP
     Route: 041
     Dates: start: 20070730, end: 20070731
  5. AZITHROMYCIN [Concomitant]
  6. CEFTRIAXONE [Concomitant]
  7. CEFTAZIDIME [Concomitant]
  8. CLINDAMYCIN HCL [Concomitant]
  9. TOBRAMYCIN [Concomitant]
  10. SLIDING SCALE INSULIN [Concomitant]
  11. FUROSEMIDE [Concomitant]
  12. KETOROLAC [Concomitant]
  13. METOPROLOL [Concomitant]
  14. VITAMN K [Concomitant]
  15. ACETAMINOPHEN [Concomitant]
  16. ASPIRIN [Concomitant]
  17. IBUPROFEN [Concomitant]
  18. HYDROCORTISONE [Concomitant]

REACTIONS (3)
  - DRY GANGRENE [None]
  - FOOT AMPUTATION [None]
  - PERIPHERAL ISCHAEMIA [None]
